FAERS Safety Report 5746499-X (Version None)
Quarter: 2008Q2

REPORT INFORMATION
  Report Type: 
  Country: None (occurrence: None)
  Receive Date: 20080522
  Receipt Date: 20080514
  Transmission Date: 20081010
  Serious: Yes (Death, Hospitalization)
  Sender: FDA-Public Use
  Company Number: PHHY2008GR07950

PATIENT
  Age: 39 Year
  Sex: Male

DRUGS (5)
  1. TASIGNA [Suspect]
     Indication: GASTROINTESTINAL STROMAL TUMOUR
     Dosage: 800 MG/ PER OS
  2. DURAGESIC-100 [Concomitant]
     Indication: ANALGESIC THERAPY
     Dosage: 50 IGR/H, DIADERMIC PADS
     Dates: start: 20071201
  3. MESULID [Concomitant]
     Indication: ANALGESIC THERAPY
     Dosage: 100 MG, BID
     Dates: start: 20071201
  4. LOSEC                                   /CAN/ [Concomitant]
     Indication: GASTRITIS
     Dosage: 40 MG, BID
     Dates: start: 20071201
  5. GLEEVEC [Suspect]
     Indication: GASTROINTESTINAL STROMAL TUMOUR
     Dosage: 400 MG/ PER OS
     Dates: start: 20070415

REACTIONS (1)
  - CEREBROVASCULAR ACCIDENT [None]
